FAERS Safety Report 10013693 (Version 2)
Quarter: 2014Q1

REPORT INFORMATION
  Report Type: Spontaneous
  Country: US (occurrence: US)
  Receive Date: 20140315
  Receipt Date: 20140315
  Transmission Date: 20141002
  Serious: Yes (Disabling)
  Sender: FDA-Public Use
  Company Number: US-GE HEALTHCARE MEDICAL DIAGNOSTICS-OSCN-PR-0908S-0405

PATIENT
  Age: 73 Year
  Sex: Male

DRUGS (5)
  1. OMNISCAN [Suspect]
     Indication: PRODUCT USED FOR UNKNOWN INDICATION
     Route: 042
     Dates: start: 20050222, end: 20050222
  2. OMNISCAN [Suspect]
     Route: 042
     Dates: start: 20050224, end: 20050224
  3. OMNISCAN [Suspect]
     Route: 042
     Dates: start: 20050303, end: 20050303
  4. OMNISCAN [Suspect]
     Route: 042
     Dates: start: 20050405, end: 20050405
  5. OPTIMARK [Suspect]
     Indication: PRODUCT USED FOR UNKNOWN INDICATION
     Route: 042
     Dates: start: 20051227, end: 20051227

REACTIONS (1)
  - Nephrogenic systemic fibrosis [Not Recovered/Not Resolved]
